FAERS Safety Report 6578907-9 (Version None)
Quarter: 2010Q1

REPORT INFORMATION
  Report Type: 
  Country: None (occurrence: None)
  Receive Date: 20100212
  Receipt Date: 20100202
  Transmission Date: 20100710
  Serious: Yes (Hospitalization)
  Sender: FDA-Public Use
  Company Number: BR-BIOGENIDEC-2009BI012123

PATIENT
  Age: 55 Year
  Sex: Female

DRUGS (6)
  1. AVONEX [Suspect]
     Indication: MULTIPLE SCLEROSIS
     Route: 030
     Dates: start: 20080101, end: 20090401
  2. AVONEX [Suspect]
     Route: 030
     Dates: start: 20090415, end: 20090605
  3. AVONEX [Suspect]
     Route: 030
     Dates: start: 20090619, end: 20091201
  4. BACLOFEN [Concomitant]
     Indication: PAIN IN EXTREMITY
  5. BACLOFEN [Concomitant]
     Indication: INDURATION
  6. UNSPECIFIED MEDICINE [Concomitant]
     Indication: DIABETES MELLITUS

REACTIONS (7)
  - BLADDER DYSFUNCTION [None]
  - INFLUENZA LIKE ILLNESS [None]
  - INJECTION SITE INDURATION [None]
  - MALAISE [None]
  - MULTIPLE SCLEROSIS RELAPSE [None]
  - SPINAL HAEMANGIOMA [None]
  - URINARY INCONTINENCE [None]
